FAERS Safety Report 5279117-8 (Version None)
Quarter: 2007Q1

REPORT INFORMATION
  Report Type: 
  Country: None (occurrence: None)
  Receive Date: 20070327
  Receipt Date: 20070327
  Transmission Date: 20070707
  Serious: Yes (Other)
  Sender: FDA-Public Use
  Company Number: None

PATIENT
  Sex: Female

DRUGS (1)
  1. OPANA ER [Suspect]
     Indication: PAIN
     Dosage: 10MG TABLET Q 4-6 H PO
     Route: 048
     Dates: start: 20070227, end: 20070325

REACTIONS (1)
  - DRUG DISPENSING ERROR [None]
